FAERS Safety Report 4383818-3 (Version None)
Quarter: 2004Q2

REPORT INFORMATION
  Report Type: 
  Country: None (occurrence: None)
  Receive Date: 20040608
  Receipt Date: 20031103
  Transmission Date: 20050107
  Serious: Yes (Hospitalization, Other)
  Sender: FDA-Public Use
  Company Number: 200314047BCC

PATIENT
  Age: 52 Year
  Sex: Male
  Weight: 72.5755 kg

DRUGS (2)
  1. ALEVE (CAPLET) [Suspect]
     Dosage: 220 MG, ONCE, ORAL
     Route: 048
     Dates: start: 20031013
  2. VITAMIN C [Concomitant]

REACTIONS (4)
  - CHEST PAIN [None]
  - HYPERSENSITIVITY [None]
  - PARAESTHESIA [None]
  - SWELLING FACE [None]
